FAERS Safety Report 8986979 (Version 3)
Quarter: 2013Q1

REPORT INFORMATION
  Report Type: Spontaneous
  Country: US (occurrence: None)
  Receive Date: 20121214
  Receipt Date: 20130131
  Transmission Date: 20140127
  Serious: Yes (Hospitalization)
  Sender: FDA-Public Use
  Company Number: 2012SP004393

PATIENT
  Age: 49 Year
  Sex: Female
  Weight: 68.57 kg

DRUGS (18)
  1. FLUOROURACIL [Suspect]
     Indication: COLORECTAL CANCER
     Route: 041
  2. FLUOROURACIL [Suspect]
     Indication: METASTASES TO LIVER
     Route: 041
  3. OXALIPLATIN [Suspect]
     Indication: COLORECTAL CANCER
     Route: 042
  4. OXALIPLATIN [Suspect]
     Indication: METASTASES TO LIVER
     Route: 042
  5. BEVACIZUMAB [Suspect]
     Indication: COLORECTAL CANCER
     Route: 042
     Dates: start: 20121009, end: 20121119
  6. BEVACIZUMAB [Suspect]
     Indication: METASTASES TO LIVER
     Route: 042
     Dates: start: 20121009, end: 20121119
  7. FOLINIC ACID [Suspect]
     Indication: COLORECTAL CANCER
     Route: 042
  8. FOLINIC ACID [Suspect]
     Indication: METASTASES TO LIVER
     Route: 042
  9. ATENOLOL [Concomitant]
  10. DURAGESIC /00174601/ [Concomitant]
  11. LEXAPRO [Concomitant]
  12. ATIVAN [Concomitant]
  13. RITALIN [Concomitant]
  14. TRAZODONE [Concomitant]
  15. PREVACID [Concomitant]
  16. PERI-COLACE [Concomitant]
  17. MORPHINE SULFATE [Concomitant]
  18. SENOKOT /00142201/ [Concomitant]

REACTIONS (5)
  - Clostridium difficile colitis [None]
  - Vomiting [None]
  - Pain [None]
  - Nausea [None]
  - Dehydration [None]
